FAERS Safety Report 14257322 (Version 1)
Quarter: 2017Q4

REPORT INFORMATION
  Report Type: Report from Study
  Country: DE (occurrence: DE)
  Receive Date: 20171207
  Receipt Date: 20171207
  Transmission Date: 20180321
  Serious: Yes (Hospitalization)
  Sender: FDA-Public Use
  Company Number: DE-B.I. PHARMACEUTICALS,INC./RIDGEFIELD-2017-BI-034017

PATIENT
  Age: 38 Year
  Sex: Female
  Weight: 56 kg

DRUGS (4)
  1. PACLITAXEL. [Suspect]
     Active Substance: PACLITAXEL
     Indication: CERVIX CARCINOMA
     Dosage: STRENGTH: 175MG/M^2
     Route: 042
     Dates: start: 20170126, end: 20170526
  2. BLINDED BIBF 1120 [Suspect]
     Active Substance: NINTEDANIB
     Indication: CERVIX CARCINOMA
     Route: 048
     Dates: start: 20170127, end: 20170606
  3. CARBOPLATIN. [Suspect]
     Active Substance: CARBOPLATIN
     Indication: CERVIX CARCINOMA
     Dosage: STRENGTH: AREA UNDER THE CURVE (AUC) 5
     Route: 042
     Dates: start: 20170126, end: 20170526
  4. BLINDED BIBF 1120 [Suspect]
     Active Substance: NINTEDANIB
     Route: 048
     Dates: start: 20170704, end: 20171024

REACTIONS (2)
  - Abdominal pain [Recovered/Resolved]
  - Thrombocytopenia [Recovered/Resolved]

NARRATIVE: CASE EVENT DATE: 20170606
